FAERS Safety Report 20461727 (Version 1)
Quarter: 2022Q1

REPORT INFORMATION
  Report Type: Spontaneous
  Country: US (occurrence: None)
  Receive Date: 20220211
  Receipt Date: 20220211
  Transmission Date: 20220423
  Serious: Yes (Other)
  Sender: FDA-Public Use
  Company Number: None

PATIENT
  Sex: Male

DRUGS (10)
  1. HUMIRA [Suspect]
     Active Substance: ADALIMUMAB
     Indication: Psoriasis
     Dosage: OTHER QUANTITY : 40 MG/0.4ML;?FREQUENCY: 1 PEN UNDER THE SKIN (SUBCUTANEOUS INJECTION) EVERY OTHER W
     Route: 058
     Dates: start: 20190327
  2. BUPROPION HYDROCHLORIDE [Concomitant]
     Active Substance: BUPROPION HYDROCHLORIDE
  3. CYCLOBENZAPRINE [Concomitant]
     Active Substance: CYCLOBENZAPRINE
  4. GLIMEPIRIDE [Concomitant]
     Active Substance: GLIMEPIRIDE
  5. HYDROCO/APAP TAB [Concomitant]
  6. hYDROXYZ HCL TAB [Concomitant]
  7. IBUPROFEN TAB [Concomitant]
  8. TOBRAMYCINE SOL [Concomitant]
  9. TRIAMICINOLONE ACETONIDE [Concomitant]
  10. VIIBRYD TAB [Concomitant]

REACTIONS (2)
  - Psoriasis [None]
  - Therapy interrupted [None]
